FAERS Safety Report 7743583-6 (Version None)
Quarter: 2011Q3

REPORT INFORMATION
  Report Type: 
  Country: None (occurrence: None)
  Receive Date: 20110819
  Receipt Date: 20110603
  Transmission Date: 20111222
  Serious: No
  Sender: FDA-Public Use
  Company Number: 034527

PATIENT
  Age: 48 Year
  Sex: Female

DRUGS (1)
  1. LACOSAMIDE [Suspect]
     Dosage: 100 MG BID

REACTIONS (6)
  - FATIGUE [None]
  - MEMORY IMPAIRMENT [None]
  - FLASHBACK [None]
  - DEPRESSION [None]
  - DISTURBANCE IN ATTENTION [None]
  - NIGHTMARE [None]
